FAERS Safety Report 4973818-4 (Version None)
Quarter: 2006Q2

REPORT INFORMATION
  Report Type: 
  Country: None (occurrence: None)
  Receive Date: 20060414
  Receipt Date: 20051219
  Transmission Date: 20061013
  Serious: Yes (Death, Hospitalization)
  Sender: FDA-Public Use
  Company Number: US-MERCK-0512USA03287

PATIENT
  Age: 40 Year
  Sex: Male

DRUGS (4)
  1. VIOXX [Suspect]
     Route: 048
     Dates: start: 19991110, end: 20001020
  2. NORVASC [Concomitant]
     Route: 065
  3. LIPITOR [Concomitant]
     Route: 065
  4. PRINZIDE [Concomitant]
     Route: 065

REACTIONS (8)
  - ARTHROPATHY [None]
  - BRAIN OEDEMA [None]
  - CARDIOMEGALY [None]
  - HYPOCALCAEMIA [None]
  - HYPOKALAEMIA [None]
  - MYOCARDIAL INFARCTION [None]
  - PULMONARY CONGESTION [None]
  - RENAL FAILURE [None]
